FAERS Safety Report 11069392 (Version 1)
Quarter: 2015Q2

REPORT INFORMATION
  Report Type: Spontaneous
  Country: DE (occurrence: DE)
  Receive Date: 20150427
  Receipt Date: 20150427
  Transmission Date: 20150821
  Serious: Yes (Hospitalization)
  Sender: FDA-Public Use
  Company Number: DE-ELI_LILLY_AND_COMPANY-DE201504005793

PATIENT
  Sex: Male

DRUGS (1)
  1. CYRAMZA [Suspect]
     Active Substance: RAMUCIRUMAB
     Indication: GASTRIC CANCER
     Dosage: 8 MG/KG, UNKNOWN
     Route: 065
     Dates: start: 201503, end: 20150414

REACTIONS (2)
  - Transient ischaemic attack [Recovered/Resolved]
  - Dysarthria [Recovering/Resolving]

NARRATIVE: CASE EVENT DATE: 20150414
